FAERS Safety Report 5147222-2 (Version None)
Quarter: 2006Q4

REPORT INFORMATION
  Report Type: 
  Country: None (occurrence: None)
  Receive Date: 20061109
  Receipt Date: 20060804
  Transmission Date: 20070319
  Serious: Yes (Life-Threatening)
  Sender: FDA-Public Use
  Company Number: IT-ABBOTT-06P-083-0339769-00

PATIENT
  Sex: Female
  Weight: 60 kg

DRUGS (4)
  1. KLACID [Suspect]
     Indication: LUNG DISORDER
     Route: 048
     Dates: start: 20060614, end: 20060620
  2. OMEPRAZOLE [Concomitant]
     Indication: DRUG USE FOR UNKNOWN INDICATION
  3. BECLOMETHASONE DIPROPIONATE [Concomitant]
     Indication: ASTHMA
  4. ALPRAZOLAM [Concomitant]
     Indication: DRUG USE FOR UNKNOWN INDICATION

REACTIONS (2)
  - ALLERGIC GRANULOMATOUS ANGIITIS [None]
  - POLYNEUROPATHY [None]
